FAERS Safety Report 23450782 (Version 1)
Quarter: 2024Q1

REPORT INFORMATION
  Report Type: Spontaneous
  Country: ES (occurrence: ES)
  Receive Date: 20240129
  Receipt Date: 20240129
  Transmission Date: 20240410
  Serious: Yes (Hospitalization)
  Sender: FDA-Public Use
  Company Number: ES-ARISTO PHARMA-PARA202401021

PATIENT
  Age: 14 Year
  Sex: Female

DRUGS (1)
  1. ACETAMINOPHEN [Suspect]
     Active Substance: ACETAMINOPHEN
     Indication: Product used for unknown indication
     Dosage: 14 GRAM (ENTIRE BLISTER PACK OF 1G PARACETAMOL TABLETS)
     Route: 065

REACTIONS (12)
  - Pallor [Unknown]
  - Asthenia [Unknown]
  - Toxicity to various agents [Unknown]
  - Anxiety [Unknown]
  - Hyperhidrosis [Unknown]
  - Fatigue [Unknown]
  - Insomnia [Unknown]
  - Somnolence [Unknown]
  - Abdominal pain [Unknown]
  - Discomfort [Unknown]
  - Intentional overdose [Unknown]
  - Intentional product misuse [Unknown]
